FAERS Safety Report 4775834-4 (Version None)
Quarter: 2005Q3

REPORT INFORMATION
  Report Type: 
  Country: None (occurrence: None)
  Receive Date: 20050922
  Receipt Date: 20050729
  Transmission Date: 20060218
  Serious: Yes (Hospitalization)
  Sender: FDA-Public Use
  Company Number: BE-AMGEN-UK144765

PATIENT
  Sex: Male
  Weight: 51.5 kg

DRUGS (8)
  1. ARANESP [Suspect]
     Indication: ANAEMIA OF MALIGNANT DISEASE
     Route: 058
     Dates: start: 20050720
  2. LEVOTHYROXINE SODIUM [Concomitant]
  3. SELO-ZOK [Concomitant]
     Route: 065
  4. BEFACT [Concomitant]
     Route: 065
  5. CETIRIZINE HCL [Concomitant]
     Route: 065
  6. RISPERIDONE [Concomitant]
     Route: 065
  7. ADALAT [Concomitant]
     Route: 065
  8. ENALAPRIL MALEATE [Concomitant]
     Route: 065

REACTIONS (1)
  - CEREBROVASCULAR ACCIDENT [None]
